FAERS Safety Report 4421624-1 (Version None)
Quarter: 2004Q3

REPORT INFORMATION
  Report Type: 
  Country: None (occurrence: None)
  Receive Date: 20040803
  Receipt Date: 20040723
  Transmission Date: 20050211
  Serious: Yes (Other)
  Sender: FDA-Public Use
  Company Number: 200410598BCA

PATIENT
  Age: 76 Year
  Sex: Male

DRUGS (2)
  1. GAMUNEX [Suspect]
     Dosage: 80 G, INTRAVENOUS
     Route: 042
  2. GAMUNEX [Suspect]

REACTIONS (3)
  - HYPERSENSITIVITY [None]
  - INFUSION RELATED REACTION [None]
  - URTICARIA [None]
